FAERS Safety Report 25752474 (Version 1)
Quarter: 2025Q3

REPORT INFORMATION
  Report Type: Spontaneous
  Country: EU (occurrence: EU)
  Receive Date: 20250902
  Receipt Date: 20250902
  Transmission Date: 20251021
  Serious: Yes (Death, Other)
  Sender: MYLAN
  Company Number: None

PATIENT
  Age: 44 Year
  Sex: Male

DRUGS (20)
  1. SERTRALINE [Suspect]
     Active Substance: SERTRALINE HYDROCHLORIDE
     Indication: Anxiety
     Dosage: 25 MILLIGRAM, QD (INCREASED THE DOSE TO 100 MG DAILY FROM 19APR2023)
     Dates: start: 20230317
  2. SERTRALINE [Suspect]
     Active Substance: SERTRALINE HYDROCHLORIDE
     Indication: Obsessive thoughts
     Dosage: 25 MILLIGRAM, QD (INCREASED THE DOSE TO 100 MG DAILY FROM 19APR2023)
     Dates: start: 20230317
  3. SERTRALINE [Suspect]
     Active Substance: SERTRALINE HYDROCHLORIDE
     Indication: Obsessive-compulsive disorder
     Dosage: 25 MILLIGRAM, QD (INCREASED THE DOSE TO 100 MG DAILY FROM 19APR2023)
     Route: 048
     Dates: start: 20230317
  4. SERTRALINE [Suspect]
     Active Substance: SERTRALINE HYDROCHLORIDE
     Dosage: 25 MILLIGRAM, QD (INCREASED THE DOSE TO 100 MG DAILY FROM 19APR2023)
     Route: 048
     Dates: start: 20230317
  5. SERTRALINE [Suspect]
     Active Substance: SERTRALINE HYDROCHLORIDE
     Dosage: 100 MILLIGRAM, QD (INCREASED THE DOSE TO 100 MG DAILY FROM 19APR2023)
     Dates: start: 20230419
  6. SERTRALINE [Suspect]
     Active Substance: SERTRALINE HYDROCHLORIDE
     Dosage: 100 MILLIGRAM, QD (INCREASED THE DOSE TO 100 MG DAILY FROM 19APR2023)
     Dates: start: 20230419
  7. SERTRALINE [Suspect]
     Active Substance: SERTRALINE HYDROCHLORIDE
     Dosage: 100 MILLIGRAM, QD (INCREASED THE DOSE TO 100 MG DAILY FROM 19APR2023)
     Route: 048
     Dates: start: 20230419
  8. SERTRALINE [Suspect]
     Active Substance: SERTRALINE HYDROCHLORIDE
     Dosage: 100 MILLIGRAM, QD (INCREASED THE DOSE TO 100 MG DAILY FROM 19APR2023)
     Route: 048
     Dates: start: 20230419
  9. MIRTAZAPINE [Suspect]
     Active Substance: MIRTAZAPINE
     Indication: Obsessive thoughts
  10. MIRTAZAPINE [Suspect]
     Active Substance: MIRTAZAPINE
     Indication: Obsessive-compulsive disorder
  11. MIRTAZAPINE [Suspect]
     Active Substance: MIRTAZAPINE
     Indication: Anxiety
     Route: 048
  12. MIRTAZAPINE [Suspect]
     Active Substance: MIRTAZAPINE
     Route: 048
  13. MIRTAZAPINE [Suspect]
     Active Substance: MIRTAZAPINE
     Dosage: 15 MILLIGRAM, QD (IN APRIL 2023, THE DOSE WAS INCREASED TO 15 MG DAILY)
     Dates: start: 202304
  14. MIRTAZAPINE [Suspect]
     Active Substance: MIRTAZAPINE
     Dosage: 15 MILLIGRAM, QD (IN APRIL 2023, THE DOSE WAS INCREASED TO 15 MG DAILY)
     Dates: start: 202304
  15. MIRTAZAPINE [Suspect]
     Active Substance: MIRTAZAPINE
     Dosage: 15 MILLIGRAM, QD (IN APRIL 2023, THE DOSE WAS INCREASED TO 15 MG DAILY)
     Route: 048
     Dates: start: 202304
  16. MIRTAZAPINE [Suspect]
     Active Substance: MIRTAZAPINE
     Dosage: 15 MILLIGRAM, QD (IN APRIL 2023, THE DOSE WAS INCREASED TO 15 MG DAILY)
     Route: 048
     Dates: start: 202304
  17. MELATONIN [Concomitant]
     Active Substance: MELATONIN
     Indication: Insomnia
     Dosage: 9 MILLIGRAM, QD (HE TOOK 9 MG DAILY (ON HIS OWN INITIATIVE))
     Dates: start: 202304
  18. MELATONIN [Concomitant]
     Active Substance: MELATONIN
     Dosage: 9 MILLIGRAM, QD (HE TOOK 9 MG DAILY (ON HIS OWN INITIATIVE))
     Route: 065
     Dates: start: 202304
  19. MELATONIN [Concomitant]
     Active Substance: MELATONIN
     Dosage: 9 MILLIGRAM, QD (HE TOOK 9 MG DAILY (ON HIS OWN INITIATIVE))
     Route: 065
     Dates: start: 202304
  20. MELATONIN [Concomitant]
     Active Substance: MELATONIN
     Dosage: 9 MILLIGRAM, QD (HE TOOK 9 MG DAILY (ON HIS OWN INITIATIVE))
     Dates: start: 202304

REACTIONS (2)
  - Completed suicide [Fatal]
  - Suicidal ideation [Not Recovered/Not Resolved]

NARRATIVE: CASE EVENT DATE: 20230401
